FAERS Safety Report 10414378 (Version 2)
Quarter: 2014Q3

REPORT INFORMATION
  Report Type: Spontaneous
  Country: RU (occurrence: RU)
  Receive Date: 20140828
  Receipt Date: 20140828
  Transmission Date: 20150326
  Serious: Yes (Other)
  Sender: FDA-Public Use
  Company Number: RU-009507513-1408RUS011935

PATIENT
  Age: 62 Year
  Sex: Female

DRUGS (3)
  1. AMZAAR [Suspect]
     Active Substance: AMLODIPINE\LOSARTAN POTASSIUM
     Dosage: UNK
     Route: 048
  2. LISINOPRIL. [Suspect]
     Active Substance: LISINOPRIL
     Dosage: UNK
     Route: 048
  3. LISINOPRIL. [Suspect]
     Active Substance: LISINOPRIL
     Dosage: DOSE WAS INCREASED
     Route: 048

REACTIONS (3)
  - Asphyxia [Recovered/Resolved]
  - Feeling abnormal [Recovered/Resolved]
  - Oedema [Recovered/Resolved]
